FAERS Safety Report 10925429 (Version 1)
Quarter: 2015Q1

REPORT INFORMATION
  Report Type: Spontaneous
  Country: US (occurrence: None)
  Receive Date: 20150316
  Receipt Date: 20150316
  Transmission Date: 20150721
  Serious: Yes (Other)
  Sender: FDA-Public Use
  Company Number: None

PATIENT
  Age: 51 Year
  Sex: Female
  Weight: 49.9 kg

DRUGS (1)
  1. VENLAFAXINE [Suspect]
     Active Substance: VENLAFAXINE HYDROCHLORIDE
     Indication: HOT FLUSH
     Dosage: 1 TAB BID ORAL
     Route: 048
     Dates: start: 20150313, end: 20150313

REACTIONS (4)
  - Dyspnoea [None]
  - Nausea [None]
  - Drug hypersensitivity [None]
  - Muscle spasms [None]

NARRATIVE: CASE EVENT DATE: 20150313
